FAERS Safety Report 25075031 (Version 1)
Quarter: 2025Q1

REPORT INFORMATION
  Report Type: Spontaneous
  Country: CN (occurrence: CN)
  Receive Date: 20250313
  Receipt Date: 20250313
  Transmission Date: 20250409
  Serious: Yes (Hospitalization)
  Sender: NOVARTIS
  Company Number: CN-002147023-NVSC2025CN040043

PATIENT
  Age: 65 Year
  Sex: Female
  Weight: 61 kg

DRUGS (4)
  1. EVEROLIMUS [Suspect]
     Active Substance: EVEROLIMUS
     Indication: Ovarian cancer
     Dosage: 5 MG, QD
     Route: 048
     Dates: start: 20250215, end: 20250225
  2. EVEROLIMUS [Suspect]
     Active Substance: EVEROLIMUS
     Indication: PIK3CA-activated mutation
  3. PAZOPANIB [Suspect]
     Active Substance: PAZOPANIB
     Indication: Ovarian cancer
     Dosage: 600 MG, QD
     Route: 048
     Dates: start: 20250215, end: 20250225
  4. PAZOPANIB [Suspect]
     Active Substance: PAZOPANIB
     Indication: PIK3CA-activated mutation

REACTIONS (8)
  - Platelet count decreased [Recovering/Resolving]
  - Diarrhoea [Recovered/Resolved]
  - Epistaxis [Recovered/Resolved]
  - Decreased appetite [Recovered/Resolved]
  - Abdominal distension [Recovered/Resolved]
  - Abdominal pain [Recovered/Resolved]
  - C-reactive protein increased [Recovering/Resolving]
  - Haemorrhage [Recovered/Resolved]

NARRATIVE: CASE EVENT DATE: 20250222
